FAERS Safety Report 10904701 (Version 1)
Quarter: 2015Q1

REPORT INFORMATION
  Report Type: Spontaneous
  Country: US (occurrence: None)
  Receive Date: 20150107
  Receipt Date: 20150107
  Transmission Date: 20150721
  Serious: No
  Sender: FDA-Public Use
  Company Number: 2014TUS013384

PATIENT
  Sex: Female

DRUGS (1)
  1. CONTRAVE [Suspect]
     Active Substance: BUPROPION HYDROCHLORIDE\NALTREXONE HYDROCHLORIDE
     Indication: WEIGHT CONTROL
     Dosage: DURATION 1 DAY, WEEK ONE: QD, ORAL
     Route: 048

REACTIONS (4)
  - Paraesthesia oral [None]
  - Dizziness [None]
  - Vomiting [None]
  - Paraesthesia [None]
